FAERS Safety Report 14633231 (Version 2)
Quarter: 2018Q2

REPORT INFORMATION
  Report Type: Report from Study
  Country: FR (occurrence: FR)
  Receive Date: 20180313
  Receipt Date: 20180508
  Transmission Date: 20180711
  Serious: Yes (Death, Hospitalization)
  Sender: FDA-Public Use
  Company Number: FR-ACTELION-A-CH2018-166752

PATIENT
  Age: 68 Year
  Sex: Male
  Weight: 80 kg

DRUGS (13)
  1. ADCIRCA [Suspect]
     Active Substance: TADALAFIL
     Dosage: 40 MG, OD
     Route: 048
     Dates: start: 20160628, end: 20180129
  2. MACITENTAN [Suspect]
     Active Substance: MACITENTAN
     Indication: PULMONARY ARTERIAL HYPERTENSION
     Dosage: 10 MG, OD
     Route: 048
     Dates: start: 20160620, end: 20180129
  3. VELETRI [Suspect]
     Active Substance: EPOPROSTENOL
     Indication: PULMONARY ARTERIAL HYPERTENSION
     Dosage: 13 NG/KG, PER MIN
     Route: 042
     Dates: start: 20171215
  4. KARDEGIC [Suspect]
     Active Substance: ASPIRIN DL-LYSINE
     Indication: PRODUCT USED FOR UNKNOWN INDICATION
     Dosage: 75 MG, QD
     Route: 065
  5. ADCIRCA [Suspect]
     Active Substance: TADALAFIL
     Indication: PULMONARY ARTERIAL HYPERTENSION
     Dosage: 20 MG, OD
     Route: 048
     Dates: start: 20160620, end: 20160627
  6. VELETRI [Suspect]
     Active Substance: EPOPROSTENOL
     Dosage: 1.513 NG/KG, PER MIN
     Route: 042
  7. MACITENTAN [Suspect]
     Active Substance: MACITENTAN
     Indication: PULMONARY ARTERIAL HYPERTENSION
     Dosage: 10 MG, OD
     Route: 048
     Dates: start: 20160620, end: 20180129
  8. DIFFU K [Suspect]
     Active Substance: POTASSIUM CHLORIDE
     Indication: PRODUCT USED FOR UNKNOWN INDICATION
     Dosage: 1800 MG, QD
     Route: 065
     Dates: start: 20160324
  9. LASIX [Suspect]
     Active Substance: FUROSEMIDE
     Indication: PRODUCT USED FOR UNKNOWN INDICATION
     Dosage: 1000 MG, QD
     Route: 065
     Dates: start: 20171228
  10. PREVISCAN (FLUINDIONE) [Suspect]
     Active Substance: FLUINDIONE
     Indication: PRODUCT USED FOR UNKNOWN INDICATION
     Dosage: 1.5 MG, QD
     Route: 065
     Dates: start: 20160324
  11. LANTUS [Suspect]
     Active Substance: INSULIN GLARGINE
     Indication: PRODUCT USED FOR UNKNOWN INDICATION
     Dosage: 34 U/ML
     Route: 065
  12. PROCORALAN [Suspect]
     Active Substance: IVABRADINE
     Indication: PRODUCT USED FOR UNKNOWN INDICATION
     Dosage: 15 MG, QD
     Route: 065
     Dates: start: 20160324
  13. CRESTOR [Suspect]
     Active Substance: ROSUVASTATIN CALCIUM
     Indication: PRODUCT USED FOR UNKNOWN INDICATION
     Dosage: 10 MG, QD
     Route: 065

REACTIONS (6)
  - Cardiac failure [Fatal]
  - Dyspnoea [Fatal]
  - Disease progression [Unknown]
  - Cardiogenic shock [Fatal]
  - Multiple organ dysfunction syndrome [Fatal]
  - Pulmonary arterial hypertension [Unknown]

NARRATIVE: CASE EVENT DATE: 201801
